FAERS Safety Report 8200960-7 (Version None)
Quarter: 2012Q1

REPORT INFORMATION
  Report Type: 
  Country: None (occurrence: None)
  Receive Date: 20120227
  Receipt Date: 20120215
  Transmission Date: 20120608
  Serious: Yes (Death)
  Sender: FDA-Public Use
  Company Number: THYM-1001240

PATIENT
  Age: 48 Year
  Sex: Male
  Weight: 60 kg

DRUGS (1)
  1. THYMOGLOBULIN [Suspect]
     Indication: ACUTE GRAFT VERSUS HOST DISEASE
     Dosage: 50 MG,QD, INTRAVENOUS
     Route: 042
     Dates: start: 20090710, end: 20090710

REACTIONS (2)
  - CONCOMITANT DISEASE AGGRAVATED [None]
  - HEPATITIS B [None]
